FAERS Safety Report 5272985-5 (Version None)
Quarter: 2007Q1

REPORT INFORMATION
  Report Type: 
  Country: None (occurrence: None)
  Receive Date: 20070322
  Receipt Date: 20070312
  Transmission Date: 20070707
  Serious: Yes (Other)
  Sender: FDA-Public Use
  Company Number: US-PFIZER INC-2007003252

PATIENT
  Sex: Female
  Weight: 73 kg

DRUGS (9)
  1. CHANTIX [Suspect]
     Indication: SMOKING CESSATION THERAPY
     Dates: start: 20070103, end: 20070109
  2. CHANTIX [Suspect]
     Indication: TOBACCO ABUSE
  3. LIPITOR [Concomitant]
  4. KLONOPIN [Concomitant]
  5. CYMBALTA [Concomitant]
     Indication: DEPRESSION
  6. TEGRETOL [Concomitant]
     Indication: BIPOLAR DISORDER
  7. SEROQUEL [Concomitant]
     Indication: MANIA
  8. HYDROCHLOROTHIAZIDE [Concomitant]
     Indication: OEDEMA
  9. UNITHROID [Concomitant]
     Indication: THYROID DISORDER

REACTIONS (6)
  - AGITATION [None]
  - ALCOHOL USE [None]
  - ANXIETY [None]
  - COSTOCHONDRITIS [None]
  - SLEEP DISORDER [None]
  - WEIGHT INCREASED [None]
